FAERS Safety Report 6134955-4 (Version None)
Quarter: 2009Q1

REPORT INFORMATION
  Report Type: 
  Country: None (occurrence: None)
  Receive Date: 20090327
  Receipt Date: 20090318
  Transmission Date: 20090719
  Serious: Yes (Hospitalization)
  Sender: FDA-Public Use
  Company Number: FR-ABBOTT-09P-056-0563162-00

PATIENT
  Sex: Female

DRUGS (2)
  1. DEPAKOTE [Suspect]
     Indication: CHILDHOOD PSYCHOSIS
     Route: 048
     Dates: start: 20080924, end: 20090121
  2. ATARAX [Concomitant]
     Indication: DRUG USE FOR UNKNOWN INDICATION
     Route: 048

REACTIONS (4)
  - BLOOD AMYLASE INCREASED [None]
  - DRUG LEVEL BELOW THERAPEUTIC [None]
  - LIPASE INCREASED [None]
  - PANCREATITIS [None]
